FAERS Safety Report 13256689 (Version 1)
Quarter: 2017Q1

REPORT INFORMATION
  Report Type: Spontaneous
  Country: US (occurrence: US)
  Receive Date: 20170220
  Receipt Date: 20170220
  Transmission Date: 20170428
  Serious: Yes (Other)
  Sender: FDA-Public Use
  Company Number: None

PATIENT
  Age: 20 Year
  Sex: Female
  Weight: 58.5 kg

DRUGS (9)
  1. ARIPIPRAZOLE (GENERIC ABILIFY) [Suspect]
     Active Substance: ARIPIPRAZOLE
     Indication: AFFECTIVE DISORDER
     Route: 048
  2. GABAPENTIN (GENERIC FOR NEURONTIN) [Concomitant]
  3. ESCITALOPRAM (GENERIC LEXAPRO) [Suspect]
     Active Substance: ESCITALOPRAM OXALATE
     Indication: BIPOLAR II DISORDER
     Route: 048
  4. ARIPIPRAZOLE (GENERIC ABILIFY) [Suspect]
     Active Substance: ARIPIPRAZOLE
     Indication: BIPOLAR II DISORDER
     Route: 048
  5. DEXMETHYLPHENIDATE (GENERIC FOR FOCALIN) [Concomitant]
  6. FLUOXETINE (GENERIC FOR PROZAC) [Concomitant]
  7. ARIPIPRAZOLE (GENERIC ABILIFY) [Suspect]
     Active Substance: ARIPIPRAZOLE
     Indication: DEPRESSION
     Route: 048
  8. ESCITALOPRAM (GENERIC LEXAPRO) [Suspect]
     Active Substance: ESCITALOPRAM OXALATE
     Indication: DEPRESSION
     Route: 048
  9. ESCITALOPRAM (GENERIC LEXAPRO) [Suspect]
     Active Substance: ESCITALOPRAM OXALATE
     Indication: AFFECTIVE DISORDER
     Route: 048

REACTIONS (10)
  - Energy increased [None]
  - Sleep disorder [None]
  - Impulsive behaviour [None]
  - Mania [None]
  - Formication [None]
  - Confusional state [None]
  - Akathisia [None]
  - Restlessness [None]
  - Feeling jittery [None]
  - Hypomania [None]

NARRATIVE: CASE EVENT DATE: 20160316
